FAERS Safety Report 6557198-9 (Version None)
Quarter: 2010Q1

REPORT INFORMATION
  Report Type: 
  Country: None (occurrence: None)
  Receive Date: 20100127
  Receipt Date: 20100127
  Transmission Date: 20100710
  Serious: Yes (Other)
  Sender: FDA-Public Use
  Company Number: None

PATIENT
  Age: 80 Year
  Sex: Male
  Weight: 65.7716 kg

DRUGS (1)
  1. ARICEPT [Suspect]
     Indication: DEMENTIA
     Dosage: SEE ABOVE 9:00 PM DAILY PO LATEST DURATION SEE ABOV
     Route: 048
     Dates: start: 20100107, end: 20100125

REACTIONS (5)
  - DECREASED APPETITE [None]
  - DEMENTIA [None]
  - INSOMNIA [None]
  - MACULAR DEGENERATION [None]
  - WEIGHT DECREASED [None]
